FAERS Safety Report 10599707 (Version 1)
Quarter: 2014Q4

REPORT INFORMATION
  Report Type: Spontaneous
  Country: GB (occurrence: GB)
  Receive Date: 20141121
  Receipt Date: 20141121
  Transmission Date: 20150529
  Serious: Yes (Hospitalization, Other)
  Sender: FDA-Public Use
  Company Number: GB-009507513-1411GBR006638

PATIENT
  Age: 48 Year
  Sex: Female

DRUGS (3)
  1. ZOLADEX [Suspect]
     Active Substance: GOSERELIN ACETATE
     Indication: OESTROGEN THERAPY
     Dosage: 10.8 MG, UNK
  2. FINASTERIDE. [Suspect]
     Active Substance: FINASTERIDE
     Indication: ANDROGEN THERAPY
     Dosage: 5 MG, OD
     Route: 048
  3. ESTRADIOL VALERATE. [Suspect]
     Active Substance: ESTRADIOL VALERATE
     Indication: OESTROGEN THERAPY
     Dosage: 6 MG, QD

REACTIONS (2)
  - Off label use [Unknown]
  - Ischaemic stroke [Unknown]
